FAERS Safety Report 23622063 (Version 1)
Quarter: 2024Q1

REPORT INFORMATION
  Report Type: Spontaneous
  Country: US (occurrence: None)
  Receive Date: 20240311
  Receipt Date: 20240311
  Transmission Date: 20240410
  Serious: No
  Sender: FDA-Public Use
  Company Number: None

PATIENT
  Age: 45 Year
  Sex: Female
  Weight: 34.02 kg

DRUGS (1)
  1. TERIPARATIDE [Suspect]
     Active Substance: TERIPARATIDE
     Indication: Senile osteoporosis
     Dosage: OTHER STRENGTH : 600 MCG/2.4 ML;?OTHER QUANTITY : 600 MCG/2.4ML;?FREQUENCY : DAILY;?
     Route: 058
     Dates: start: 202312

REACTIONS (2)
  - Full blood count decreased [None]
  - Therapy interrupted [None]
